FAERS Safety Report 9224740 (Version 3)
Quarter: 2014Q1

REPORT INFORMATION
  Report Type: Spontaneous
  Country: US (occurrence: None)
  Receive Date: 20130409
  Receipt Date: 20130815
  Transmission Date: 20141002
  Serious: Yes (Other)
  Sender: FDA-Public Use
  Company Number: ADR-2013-00602

PATIENT
  Age: 58 Year
  Sex: Male

DRUGS (1)
  1. BACLOFEN [Suspect]
     Indication: MUSCLE SPASTICITY

REACTIONS (10)
  - Overdose [None]
  - Somnolence [None]
  - Drooling [None]
  - Abnormal behaviour [None]
  - Dysstasia [None]
  - Cerebrovascular accident [None]
  - Hypotonia [None]
  - Hypersomnia [None]
  - Gait disturbance [None]
  - Dysstasia [None]
